FAERS Safety Report 10227886 (Version 1)
Quarter: 2014Q2

REPORT INFORMATION
  Report Type: Spontaneous
  Country: US (occurrence: US)
  Receive Date: 20140610
  Receipt Date: 20140610
  Transmission Date: 20141212
  Serious: No
  Sender: FDA-Public Use
  Company Number: US-BAYER-2014-086167

PATIENT
  Age: 83 Year
  Sex: Female
  Weight: 36.28 kg

DRUGS (2)
  1. ALEVE TABLET [Suspect]
     Indication: CHEST PAIN
     Dosage: 2 DF, PRN
     Route: 048
  2. BAYER ASPIRIN REGIMEN ADULT LOW STRENGTH [Concomitant]

REACTIONS (1)
  - Off label use [Not Recovered/Not Resolved]
